FAERS Safety Report 24636925 (Version 1)
Quarter: 2024Q4

REPORT INFORMATION
  Report Type: Spontaneous
  Country: DE (occurrence: DE)
  Receive Date: 20241119
  Receipt Date: 20241119
  Transmission Date: 20250115
  Serious: Yes (Hospitalization, Other)
  Sender: MERCK
  Company Number: DE-009507513-2411DEU005015

PATIENT
  Age: 69 Year
  Sex: Male

DRUGS (1)
  1. PEMBROLIZUMAB [Suspect]
     Active Substance: PEMBROLIZUMAB
     Indication: Lung adenocarcinoma
     Dosage: UNK
     Dates: start: 201707

REACTIONS (11)
  - Adrenocortical insufficiency acute [Unknown]
  - Blood corticotrophin decreased [Unknown]
  - Hypothyroidism [Unknown]
  - Hypophysitis [Unknown]
  - Fatigue [Unknown]
  - Decreased appetite [Unknown]
  - Myalgia [Unknown]
  - Dizziness [Unknown]
  - General physical health deterioration [Unknown]
  - Hypogonadism [Unknown]
  - Vomiting [Unknown]

NARRATIVE: CASE EVENT DATE: 20180401
